FAERS Safety Report 5614585-0 (Version None)
Quarter: 2008Q1

REPORT INFORMATION
  Report Type: 
  Country: None (occurrence: None)
  Receive Date: 20080205
  Receipt Date: 20080115
  Transmission Date: 20080703
  Serious: No
  Sender: FDA-Public Use
  Company Number: US-BOEHRINGER INGELHEIM GMBH, GERMANY-2008-BP-00769BP

PATIENT
  Sex: Female

DRUGS (8)
  1. SPIRIVA [Suspect]
     Indication: CHRONIC OBSTRUCTIVE PULMONARY DISEASE
     Route: 055
     Dates: start: 20070401
  2. TYLENOL [Concomitant]
  3. CALCIUM GLUCONATE [Concomitant]
  4. POTASSIUM CHLORIDE [Concomitant]
  5. ASPIRIN [Concomitant]
  6. IRON [Concomitant]
  7. BUMEX [Concomitant]
     Indication: BLADDER DISORDER
  8. PROCRIT [Concomitant]

REACTIONS (4)
  - DRUG INEFFECTIVE [None]
  - KIDNEY INFECTION [None]
  - PNEUMONIA [None]
  - PYREXIA [None]
